FAERS Safety Report 4841372-3 (Version None)
Quarter: 2005Q4

REPORT INFORMATION
  Report Type: 
  Country: None (occurrence: None)
  Receive Date: 20051130
  Receipt Date: 20051115
  Transmission Date: 20060501
  Serious: Yes (Hospitalization)
  Sender: FDA-Public Use
  Company Number: ZA-MERCK-0511ZAF00019

PATIENT
  Sex: Male

DRUGS (1)
  1. INVANZ [Suspect]
     Route: 042

REACTIONS (3)
  - APPENDICITIS PERFORATED [None]
  - CONDITION AGGRAVATED [None]
  - GILBERT'S SYNDROME [None]
